FAERS Safety Report 7424501-7 (Version None)
Quarter: 2011Q2

REPORT INFORMATION
  Report Type: 
  Country: None (occurrence: None)
  Receive Date: 20110411
  Receipt Date: 20110401
  Transmission Date: 20111010
  Serious: Yes (Death)
  Sender: FDA-Public Use
  Company Number: 876315

PATIENT
  Age: 88 Year
  Sex: Female

DRUGS (2)
  1. AMIDATE [Suspect]
     Indication: ENDOTRACHEAL INTUBATION
     Dosage: X 1 , INTRAVENOUS (NOT OTHERWISE SPECIFIED)
     Route: 042
     Dates: start: 20110401, end: 20110401
  2. QUELICIN [Suspect]
     Indication: ENDOTRACHEAL INTUBATION
     Dosage: X 1 INTRAVENOUS (NOT OTHERWISE SPECIFIED)
     Route: 042
     Dates: start: 20110401, end: 20110401

REACTIONS (2)
  - CARDIAC ARREST [None]
  - ANAPHYLACTIC REACTION [None]
